FAERS Safety Report 7690206-0 (Version None)
Quarter: 2011Q3

REPORT INFORMATION
  Report Type: 
  Country: None (occurrence: None)
  Receive Date: 20110812
  Receipt Date: 20110803
  Transmission Date: 20111222
  Serious: Yes (Hospitalization)
  Sender: FDA-Public Use
  Company Number: 2011SP036247

PATIENT
  Age: 76 Year
  Sex: Male

DRUGS (16)
  1. CALCIUMGLUBIONAAT [Concomitant]
  2. FENTANYL [Concomitant]
  3. APLD (PLITIDEPSIN) (OTHER ANITNEOPLASTIC AGENTS) [Suspect]
     Indication: MULTIPLE MYELOMA
     Dosage: 5 MG/M2;IV
     Route: 042
     Dates: start: 20110204, end: 20110204
  4. HEPARIN [Concomitant]
  5. ALLOPURINOL [Concomitant]
  6. ESOMEPRAZOLE MAGNESIUM [Concomitant]
  7. HYDROCORTISONE [Concomitant]
  8. SALBUTAMOL/IPRATROPIUM [Concomitant]
  9. FLUCONAZOLE [Concomitant]
  10. ACETAMINOPHEN [Concomitant]
  11. NATRIUMCHLORIDE [Concomitant]
  12. DEXAMETHASONE [Suspect]
     Indication: MULTIPLE MYELOMA
     Dosage: 40 MG; 40 MG
     Dates: start: 20110225
  13. DEXAMETHASONE [Suspect]
     Indication: MULTIPLE MYELOMA
     Dosage: 40 MG; 40 MG
     Dates: start: 20110204, end: 20110204
  14. COTRIM [Concomitant]
  15. GLUCOSE [Concomitant]
  16. GELOFUSINE [Concomitant]

REACTIONS (1)
  - RHABDOMYOLYSIS [None]
